FAERS Safety Report 9366181 (Version 1)
Quarter: 2013Q2

REPORT INFORMATION
  Report Type: Spontaneous
  Country: AU (occurrence: AU)
  Receive Date: 20130625
  Receipt Date: 20130625
  Transmission Date: 20140414
  Serious: Yes (Death)
  Sender: FDA-Public Use
  Company Number: AU-SANOFI-AVENTIS-2013SA061912

PATIENT
  Age: 87 Year
  Sex: Female
  Weight: 95 kg

DRUGS (1)
  1. CLOPIDOGREL BISULFATE [Suspect]
     Indication: PRODUCT USED FOR UNKNOWN INDICATION
     Route: 048
     Dates: end: 20130415

REACTIONS (2)
  - Platelet count decreased [Fatal]
  - Cerebral haemorrhage [Fatal]
